FAERS Safety Report 7998006 (Version 2)
Quarter: 2013Q3

REPORT INFORMATION
  Report Type: Report from Study
  Country: US (occurrence: US)
  Receive Date: 20110620
  Receipt Date: 20130829
  Transmission Date: 20140515
  Serious: Yes (Hospitalization)
  Sender: FDA-Public Use
  Company Number: US-ROCHE-783362

PATIENT
  Age: 70 Year
  Sex: Male
  Weight: 91.2 kg

DRUGS (2)
  1. BEVACIZUMAB [Suspect]
     Indication: RENAL CELL CARCINOMA
     Dosage: OVER 30-90 MINS ON DAY 1 AND 15 OF 28 DAY CYCLE. DATE OF LAST DOSE:17 NOVEMBER 2010.
     Route: 042
  2. SORAFENIB [Suspect]
     Indication: RENAL CELL CARCINOMA
     Dosage: ON DAYS 1-5,8-12, 15-19 AND 22-26 OF 28 DAYS CYCLE, DATE OF LAST DOSE: 26/NOV/2010.
     Route: 048

REACTIONS (7)
  - Dehydration [Recovered/Resolved]
  - Vomiting [Recovered/Resolved]
  - Diarrhoea [Recovered/Resolved]
  - Nausea [Recovered/Resolved]
  - Syncope [Recovered/Resolved]
  - Small intestinal haemorrhage [Recovered/Resolved]
  - Gastritis [Recovering/Resolving]
